FAERS Safety Report 15776534 (Version 2)
Quarter: 2019Q1

REPORT INFORMATION
  Report Type: Spontaneous
  Country: US (occurrence: US)
  Receive Date: 20181231
  Receipt Date: 20190315
  Transmission Date: 20190417
  Serious: Yes (Other)
  Sender: FDA-Public Use
  Company Number: US-OTSUKA-2018_026476

PATIENT

DRUGS (2)
  1. ARIPIPRAZOLE. [Concomitant]
     Active Substance: ARIPIPRAZOLE
     Indication: PRODUCT USED FOR UNKNOWN INDICATION
     Dosage: UNK
     Route: 065
     Dates: end: 20170716
  2. ABILIFY [Suspect]
     Active Substance: ARIPIPRAZOLE
     Indication: PRODUCT USED FOR UNKNOWN INDICATION
     Dosage: UNK
     Route: 065
     Dates: end: 20170716

REACTIONS (5)
  - Economic problem [Unknown]
  - Condition aggravated [Recovered/Resolved]
  - Obsessive-compulsive disorder [Unknown]
  - Weight increased [Unknown]
  - Gambling disorder [Recovered/Resolved]

NARRATIVE: CASE EVENT DATE: 2006
